FAERS Safety Report 16240509 (Version 1)
Quarter: 2019Q2

REPORT INFORMATION
  Report Type: Spontaneous
  Country: US (occurrence: US)
  Receive Date: 20190425
  Receipt Date: 20190425
  Transmission Date: 20190711
  Serious: Yes (Other)
  Sender: FDA-Public Use
  Company Number: US-MYLANLABS-2019M1038855

PATIENT
  Age: 71 Year
  Sex: Female

DRUGS (1)
  1. VANCOMYCIN [Suspect]
     Active Substance: VANCOMYCIN
     Indication: PRODUCT USED FOR UNKNOWN INDICATION
     Dosage: ADMINISTERED DURING BOTH THE SURGERIES
     Route: 050

REACTIONS (5)
  - Retinal haemorrhage [Recovering/Resolving]
  - Optic atrophy [Recovering/Resolving]
  - Retinal vascular occlusion [Recovering/Resolving]
  - Retinal vasculitis [Recovering/Resolving]
  - Haemorrhagic vasculitis [Recovering/Resolving]
